FAERS Safety Report 9267234 (Version 3)
Quarter: 2014Q1

REPORT INFORMATION
  Report Type: Spontaneous
  Country: DE (occurrence: DE)
  Receive Date: 20130502
  Receipt Date: 20140328
  Transmission Date: 20141002
  Serious: Yes (Hospitalization)
  Sender: FDA-Public Use
  Company Number: PHHY2013DE042203

PATIENT
  Sex: Female

DRUGS (3)
  1. EXTAVIA [Suspect]
     Indication: MULTIPLE SCLEROSIS
     Dosage: 250 UG, QOD
     Route: 058
     Dates: start: 201303, end: 20130419
  2. IBUPROFEN [Concomitant]
     Dosage: 600 MG, UNK
  3. CITALOPRAM [Concomitant]
     Dosage: 20 MG, DAILY

REACTIONS (7)
  - Drug-induced liver injury [Recovered/Resolved]
  - Jaundice [Unknown]
  - Chromaturia [Unknown]
  - Faeces pale [Unknown]
  - Pruritus [Unknown]
  - Fatigue [Unknown]
  - Decreased appetite [Unknown]
